FAERS Safety Report 4809779-8 (Version None)
Quarter: 2005Q4

REPORT INFORMATION
  Report Type: 
  Country: None (occurrence: None)
  Receive Date: 20051024
  Receipt Date: 20051014
  Transmission Date: 20060501
  Serious: Yes (Hospitalization)
  Sender: FDA-Public Use
  Company Number: KII-2005-0019097

PATIENT
  Age: 73 Year
  Sex: Female

DRUGS (5)
  1. OXYCODONE HCL [Suspect]
     Dosage: ORAL
     Route: 048
  2. METHADONE HCL [Suspect]
     Dosage: SEE IMAGE
     Route: 048
     Dates: start: 20050919, end: 20050921
  3. METHADONE HCL [Suspect]
     Dosage: SEE IMAGE
     Route: 048
     Dates: start: 20050922, end: 20050923
  4. METHADONE HCL [Suspect]
     Dosage: SEE IMAGE
     Route: 048
     Dates: start: 20050923
  5. HYDROCODONE BITARTRATE [Suspect]
     Dosage: ORAL
     Route: 048

REACTIONS (5)
  - DISORIENTATION [None]
  - MENTAL STATUS CHANGES [None]
  - OVERDOSE [None]
  - OXYGEN SATURATION ABNORMAL [None]
  - SOMNOLENCE [None]
